FAERS Safety Report 14030657 (Version 1)
Quarter: 2017Q4

REPORT INFORMATION
  Report Type: Spontaneous
  Country: JP (occurrence: JP)
  Receive Date: 20171002
  Receipt Date: 20171002
  Transmission Date: 20180321
  Serious: Yes (Hospitalization)
  Sender: FDA-Public Use
  Company Number: JP-BAYER-2017-171429

PATIENT
  Age: 83 Year
  Sex: Male
  Weight: 67 kg

DRUGS (4)
  1. XARELTO [Suspect]
     Active Substance: RIVAROXABAN
     Indication: ATRIAL FIBRILLATION
     Dosage: 10 MG, QD
     Route: 048
     Dates: start: 20170127
  2. XARELTO [Suspect]
     Active Substance: RIVAROXABAN
     Indication: ATRIAL FIBRILLATION
     Dosage: 15 MG, QD
     Route: 048
     Dates: start: 20160916, end: 20161211
  3. CELECOXIB. [Concomitant]
     Active Substance: CELECOXIB
     Indication: CHONDROCALCINOSIS PYROPHOSPHATE
     Dosage: UNK
     Dates: start: 20161215, end: 20161230
  4. BAYASPIRIN 100 MG [Suspect]
     Active Substance: ASPIRIN
     Dosage: 100 MG, QD
     Route: 048
     Dates: start: 20130913, end: 20161211

REACTIONS (3)
  - Large intestinal haemorrhage [Recovered/Resolved]
  - Chronic kidney disease [Recovered/Resolved]
  - Drug interaction [None]

NARRATIVE: CASE EVENT DATE: 20161211
